FAERS Safety Report 16766947 (Version 1)
Quarter: 2019Q4

REPORT INFORMATION
  Report Type: Spontaneous
  Country: US (occurrence: US)
  Receive Date: 20190902
  Receipt Date: 20190902
  Transmission Date: 20200122
  Serious: Yes (Other)
  Sender: FDA-Public Use
  Company Number: None

PATIENT
  Age: 38 Year
  Sex: Female
  Weight: 65.25 kg

DRUGS (2)
  1. SUMATRIPTAN. [Concomitant]
     Active Substance: SUMATRIPTAN
  2. AIMOVIG [Suspect]
     Active Substance: ERENUMAB-AOOE

REACTIONS (6)
  - Constipation [None]
  - Palpitations [None]
  - Gastrooesophageal reflux disease [None]
  - Insomnia [None]
  - Alopecia [None]
  - Anxiety [None]

NARRATIVE: CASE EVENT DATE: 20190402
